FAERS Safety Report 14227103 (Version 1)
Quarter: 2017Q4

REPORT INFORMATION
  Report Type: Spontaneous
  Country: FR (occurrence: FR)
  Receive Date: 20171127
  Receipt Date: 20171127
  Transmission Date: 20180321
  Serious: Yes (Disabling)
  Sender: FDA-Public Use
  Company Number: FR-PFIZER INC-2017502519

PATIENT
  Age: 73 Year
  Sex: Female

DRUGS (1)
  1. ZYVOXID [Suspect]
     Active Substance: LINEZOLID

REACTIONS (2)
  - Visual impairment [Not Recovered/Not Resolved]
  - Hypertension [Unknown]
